FAERS Safety Report 15994996 (Version 1)
Quarter: 2019Q1

REPORT INFORMATION
  Report Type: Spontaneous
  Country: CA (occurrence: CA)
  Receive Date: 20190222
  Receipt Date: 20190222
  Transmission Date: 20190418
  Serious: Yes (Death, Other)
  Sender: FDA-Public Use
  Company Number: CA-PURDUE PHARMA-CAN-2019-0009676

PATIENT
  Age: 43 Year
  Sex: Female

DRUGS (2)
  1. MORPHINE SULFATE. [Suspect]
     Active Substance: MORPHINE SULFATE
     Indication: PRESCRIBED OVERDOSE
     Dosage: UNK
     Route: 065
  2. SECOBARBITAL [Suspect]
     Active Substance: SECOBARBITAL
     Indication: ASSISTED SUICIDE
     Dosage: UNK
     Route: 065

REACTIONS (5)
  - Prescribed overdose [Fatal]
  - Loss of consciousness [Fatal]
  - Off label use [Fatal]
  - Intentional product use issue [Fatal]
  - Respiratory arrest [Fatal]
